FAERS Safety Report 12300157 (Version 1)
Quarter: 2016Q2

REPORT INFORMATION
  Report Type: Spontaneous
  Country: US (occurrence: None)
  Receive Date: 20160422
  Receipt Date: 20160422
  Transmission Date: 20160815
  Serious: No
  Sender: FDA-Public Use
  Company Number: None

PATIENT
  Age: 62 Year
  Sex: Male

DRUGS (1)
  1. PROGRAF [Suspect]
     Active Substance: TACROLIMUS\TACROLIMUS ANHYDROUS
     Dosage: 2MG AM AND 1 MG PM BID ORAL
     Route: 048

REACTIONS (2)
  - Headache [None]
  - Hypotension [None]

NARRATIVE: CASE EVENT DATE: 20160421
